FAERS Safety Report 12701979 (Version 1)
Quarter: 2016Q3

REPORT INFORMATION
  Report Type: Spontaneous
  Country: US (occurrence: US)
  Receive Date: 20160831
  Receipt Date: 20160831
  Transmission Date: 20161109
  Serious: No
  Sender: FDA-Public Use
  Company Number: US-BAYER-2016-162513

PATIENT
  Sex: Male
  Weight: 117.1 kg

DRUGS (10)
  1. L-ARGININE HCL [Concomitant]
     Dosage: 500 MG, QD
     Route: 048
     Dates: start: 2005
  2. FLAXSEED [Concomitant]
     Active Substance: FLAX SEED
     Dosage: 4 DF, QD
     Route: 048
     Dates: start: 201601
  3. VITAMIN B12 [Concomitant]
     Active Substance: CYANOCOBALAMIN
     Dosage: 1 DF, QD
     Route: 048
     Dates: start: 201509
  4. GINSENG [Concomitant]
     Active Substance: ASIAN GINSENG
     Dosage: 1 DF, QD
     Route: 048
  5. VITA-B6 [Concomitant]
     Dosage: 100 MG, QD
     Route: 048
     Dates: start: 201509
  6. ARTIFICIAL TEARS [HYPROMELLOSE] [Concomitant]
     Dosage: 1 DF, QD
     Route: 047
     Dates: start: 2005
  7. EQUATE [Concomitant]
     Active Substance: UNSPECIFIED INGREDIENT
     Dosage: 120 MG, UNK
     Route: 048
  8. ALEVE [Suspect]
     Active Substance: NAPROXEN SODIUM
     Dosage: 2 DF, BID
     Route: 048
  9. DEPO-TESTOSTERONE [Suspect]
     Active Substance: TESTOSTERONE CYPIONATE
     Dosage: UNK
  10. ZINC [Concomitant]
     Active Substance: ZINC\ZINC CHLORIDE
     Dosage: 100 MG, QD
     Route: 048

REACTIONS (2)
  - Product use issue [None]
  - Blood testosterone decreased [None]
